FAERS Safety Report 7551880-2 (Version None)
Quarter: 2011Q2

REPORT INFORMATION
  Report Type: 
  Country: None (occurrence: None)
  Receive Date: 20110616
  Receipt Date: 20110602
  Transmission Date: 20111010
  Serious: Yes (Hospitalization)
  Sender: FDA-Public Use
  Company Number: ES-CELGENEUS-144-50794-11060699

PATIENT
  Age: 64 Year
  Sex: Female

DRUGS (3)
  1. VIDAZA [Suspect]
     Dates: start: 20090925, end: 20091124
  2. VIDAZA [Suspect]
     Route: 050
     Dates: start: 20090501
  3. TRANSFUSION [Concomitant]
     Route: 051

REACTIONS (7)
  - INFLUENZA [None]
  - RESPIRATORY SYNCYTIAL VIRUS INFECTION [None]
  - HERPES ZOSTER [None]
  - FEBRILE NEUTROPENIA [None]
  - LUNG INFECTION [None]
  - POST HERPETIC NEURALGIA [None]
  - PYREXIA [None]
